FAERS Safety Report 4468148-3 (Version None)
Quarter: 2004Q4

REPORT INFORMATION
  Report Type: 
  Country: None (occurrence: None)
  Receive Date: 20041004
  Receipt Date: 20040921
  Transmission Date: 20050328
  Serious: Yes (Other)
  Sender: FDA-Public Use
  Company Number: STA-AE-04-MTX-444

PATIENT
  Age: 75 Year
  Sex: Male

DRUGS (6)
  1. METHOTREXATE [Suspect]
     Indication: RHEUMATOID ARTHRITIS
     Dates: start: 19920430
  2. FOLIC ACID [Concomitant]
  3. OXAPROZIN [Concomitant]
  4. DARVOCET-N (DEXTROPROPOXYPHENE/PARACETAMOL) [Concomitant]
  5. NORVASC [Concomitant]
  6. LABETALOL HCL [Concomitant]

REACTIONS (3)
  - METASTASES TO EYE [None]
  - METASTASES TO LUNG [None]
  - METASTATIC MALIGNANT MELANOMA [None]
